FAERS Safety Report 6097946-8 (Version None)
Quarter: 2009Q1

REPORT INFORMATION
  Report Type: 
  Country: None (occurrence: None)
  Receive Date: 20090227
  Receipt Date: 20090219
  Transmission Date: 20090719
  Serious: Yes (Hospitalization, Other)
  Sender: FDA-Public Use
  Company Number: US-ABBOTT-09P-163-0558278-00

PATIENT
  Sex: Male
  Weight: 68.1 kg

DRUGS (5)
  1. HUMIRA [Suspect]
     Indication: RHEUMATOID ARTHRITIS
     Route: 058
     Dates: start: 20061101, end: 20080101
  2. HUMIRA [Suspect]
     Route: 058
     Dates: start: 20080101
  3. PREDNISONE [Concomitant]
     Indication: RHEUMATOID ARTHRITIS
     Route: 048
  4. PROTONIX [Concomitant]
     Indication: PROPHYLAXIS
     Route: 048
  5. XANAX [Concomitant]
     Indication: ANXIETY
     Dosage: 1 TO 4 MG QD
     Route: 048

REACTIONS (9)
  - ASTHENIA [None]
  - BLOOD CALCIUM INCREASED [None]
  - DEHYDRATION [None]
  - DEPRESSION [None]
  - DYSPNOEA [None]
  - HEPATIC ENZYME INCREASED [None]
  - HEPATITIS B [None]
  - INCOHERENT [None]
  - INFLUENZA LIKE ILLNESS [None]
